FAERS Safety Report 11420463 (Version 1)
Quarter: 2015Q3

REPORT INFORMATION
  Report Type: Spontaneous
  Country: FR (occurrence: FR)
  Receive Date: 20150826
  Receipt Date: 20150826
  Transmission Date: 20151125
  Serious: Yes (Life-Threatening, Hospitalization)
  Sender: FDA-Public Use
  Company Number: FR-009507513-1508FRA010183

PATIENT
  Age: 61 Year
  Sex: Male
  Weight: 97 kg

DRUGS (3)
  1. TIENAM IV 250MG/250MG, POUDRE POUR PERFUSION [Suspect]
     Active Substance: CILASTATIN SODIUM\IMIPENEM
     Dosage: 500 MG, QID
     Route: 042
     Dates: start: 20141217, end: 20141218
  2. AMIKACINE MYLAN [Suspect]
     Active Substance: AMIKACIN
     Dosage: 1455 MG, QD
     Route: 042
     Dates: start: 20141217, end: 20141218
  3. VANCOMYCIN MYLAN [Suspect]
     Active Substance: VANCOMYCIN
     Dosage: 900 MG, QID
     Route: 042
     Dates: start: 20141218, end: 20141220

REACTIONS (1)
  - Renal tubular necrosis [Recovered/Resolved]

NARRATIVE: CASE EVENT DATE: 20141219
